FAERS Safety Report 6451232-2 (Version None)
Quarter: 2009Q4

REPORT INFORMATION
  Report Type: 
  Country: None (occurrence: None)
  Receive Date: 20091123
  Receipt Date: 20091116
  Transmission Date: 20100525
  Serious: Yes (Hospitalization)
  Sender: FDA-Public Use
  Company Number: FR-WYE-H12203209

PATIENT
  Age: 87 Year
  Sex: Male

DRUGS (10)
  1. CORDARONE [Suspect]
     Indication: ATRIAL FIBRILLATION
     Dosage: DOSE AND FREQUENCY NOT SPECIFIED
     Route: 048
     Dates: start: 20040101, end: 20090101
  2. ZOMETA [Suspect]
     Indication: MULTIPLE MYELOMA
     Dosage: 4MG, FREQUENCY NOT SPECIFIED
     Route: 042
     Dates: start: 20040101, end: 20050601
  3. LYTOS [Suspect]
     Indication: MULTIPLE MYELOMA
     Dosage: 520MG, FREQUENCY NOT SPECIFIED
     Route: 048
     Dates: start: 20060401, end: 20080801
  4. EPOGEN [Concomitant]
     Dosage: DOSE AND FREQUENCY NOT SPECIFIED
     Route: 065
     Dates: start: 20040101, end: 20080801
  5. THALIDOMIDE [Suspect]
     Indication: MULTIPLE MYELOMA
     Dosage: 50MG, FREQUENCY NOT SPECIFIED
     Route: 048
     Dates: start: 20061201, end: 20090101
  6. DEXAMETHASONE [Suspect]
     Indication: MULTIPLE MYELOMA
     Dosage: DOSE AND FREQUENCY NOT SPECIFIED
     Route: 042
     Dates: start: 20080301, end: 20080501
  7. BISOPROLOL FUMARATE [Suspect]
     Indication: ATRIAL FIBRILLATION
     Dosage: DOSE AND FREQUENCY NOT SPECIFIED
     Route: 048
     Dates: start: 20040101, end: 20090101
  8. PREVISCAN [Suspect]
     Indication: ATRIAL FIBRILLATION
     Dosage: 20MG, FREQUENCY NOT SPECIFIED
     Route: 048
     Dates: start: 20040101, end: 20090101
  9. PREDNISONE [Suspect]
     Indication: MULTIPLE MYELOMA
     Dosage: DOSE AND FREQUENCY NOT SPECIFIED
     Route: 048
     Dates: start: 20040101, end: 20061001
  10. ALKERAN [Suspect]
     Indication: MULTIPLE MYELOMA
     Dosage: 50MG, FREQUENCY NOT SPECIFIED
     Route: 042
     Dates: start: 20040101, end: 20070501

REACTIONS (1)
  - OSTEONECROSIS [None]
